FAERS Safety Report 4615376-X (Version None)
Quarter: 2005Q1

REPORT INFORMATION
  Report Type: 
  Country: None (occurrence: None)
  Receive Date: 20050317
  Receipt Date: 20050308
  Transmission Date: 20050727
  Serious: Yes (Other)
  Sender: FDA-Public Use
  Company Number: 2005042722

PATIENT
  Age: 18 Year
  Sex: Male

DRUGS (3)
  1. SOMATROPIN (SOMATROPIN) [Suspect]
     Indication: ILL-DEFINED DISORDER
     Dosage: 1.3 MG, SUBCUTANEOUS
     Route: 058
     Dates: start: 20030501, end: 20050101
  2. LEVOTHYROXINE SODIUM [Concomitant]
  3. HYDROCORTISONE [Concomitant]

REACTIONS (2)
  - CEREBRAL CYST [None]
  - NEOPLASM RECURRENCE [None]
